FAERS Safety Report 5107730-7 (Version None)
Quarter: 2006Q3

REPORT INFORMATION
  Report Type: 
  Country: None (occurrence: None)
  Receive Date: 20060919
  Receipt Date: 20060906
  Transmission Date: 20061208
  Serious: Yes (Life-Threatening, Other)
  Sender: FDA-Public Use
  Company Number: JP-BRISTOL-MYERS SQUIBB COMPANY-13501010

PATIENT
  Age: 58 Year
  Sex: Female

DRUGS (18)
  1. PARAPLATIN [Suspect]
     Indication: OVARIAN CANCER
     Route: 041
     Dates: end: 20050531
  2. TAXOL [Suspect]
     Indication: OVARIAN CANCER
     Route: 041
     Dates: end: 20050531
  3. DEXART [Suspect]
     Indication: PREMEDICATION
     Route: 042
     Dates: end: 20050531
  4. KYTRIL [Suspect]
     Dates: start: 20060531, end: 20060531
  5. ZANTAC [Suspect]
     Indication: PREMEDICATION
     Dates: end: 20050531
  6. VOLTAREN [Concomitant]
     Route: 048
  7. ALOSENN [Concomitant]
     Route: 048
  8. MAGNESIUM [Concomitant]
     Route: 048
  9. DORAL [Concomitant]
     Route: 048
  10. MYSLEE [Concomitant]
     Route: 048
  11. MUCOSTA [Concomitant]
     Route: 048
  12. AZELASTINE HCL [Concomitant]
     Route: 048
  13. THEOPHYLLINE [Concomitant]
     Route: 048
  14. MYONAL [Concomitant]
     Route: 048
  15. ONEALFA [Concomitant]
     Route: 048
  16. RIZE [Concomitant]
     Route: 048
  17. FOLIAMIN [Concomitant]
  18. CYANOCOBALAMIN [Concomitant]

REACTIONS (6)
  - CARDIAC ARREST [None]
  - CHEST DISCOMFORT [None]
  - CYANOSIS [None]
  - HYPERSENSITIVITY [None]
  - RESPIRATORY ARREST [None]
  - VOMITING [None]
